FAERS Safety Report 4604036-7 (Version None)
Quarter: 2005Q1

REPORT INFORMATION
  Report Type: 
  Country: None (occurrence: None)
  Receive Date: 20050309
  Receipt Date: 20050309
  Transmission Date: 20050727
  Serious: No
  Sender: FDA-Public Use
  Company Number: None

PATIENT
  Age: 17 Year
  Sex: Female

DRUGS (2)
  1. LUTERA [Suspect]
     Indication: CONTRACEPTION
     Dosage: ONE BY MOUTH DAILY
     Dates: start: 20040601
  2. . [Concomitant]

REACTIONS (3)
  - CONDITION AGGRAVATED [None]
  - INCREASED APPETITE [None]
  - MUSCLE SPASMS [None]
